FAERS Safety Report 4886468-5 (Version None)
Quarter: 2006Q1

REPORT INFORMATION
  Report Type: 
  Country: None (occurrence: None)
  Receive Date: 20060120
  Receipt Date: 20051115
  Transmission Date: 20060701
  Serious: Yes (Death)
  Sender: FDA-Public Use
  Company Number: US-BRISTOL-MYERS SQUIBB COMPANY-13181508

PATIENT
  Age: 73 Year
  Sex: Male

DRUGS (4)
  1. MEGACE [Suspect]
  2. RADIATION THERAPY [Concomitant]
     Indication: LUNG NEOPLASM MALIGNANT
  3. CARBOPLATIN [Concomitant]
     Indication: LUNG NEOPLASM MALIGNANT
  4. TAXOTERE [Concomitant]
     Indication: LUNG NEOPLASM MALIGNANT

REACTIONS (1)
  - MALIGNANT NEOPLASM PROGRESSION [None]
